FAERS Safety Report 17389420 (Version 1)
Quarter: 2020Q1

REPORT INFORMATION
  Report Type: Spontaneous
  Country: US (occurrence: US)
  Receive Date: 20200123
  Receipt Date: 20200123
  Transmission Date: 20200409
  Serious: Yes (Hospitalization)
  Sender: FDA-Public Use
  Company Number: None

PATIENT
  Sex: Female

DRUGS (1)
  1. TRIKAFTA [Suspect]
     Active Substance: ELEXACAFTOR\IVACAFTOR\TEZACAFTOR
     Indication: PRODUCT USED FOR UNKNOWN INDICATION
     Dosage: ?          OTHER DOSE:2 TABS-1 TAB;OTHER FREQUENCY:QAM-QPM;?
     Route: 048
     Dates: start: 20200101

REACTIONS (1)
  - Hospitalisation [None]
